FAERS Safety Report 5289354-4 (Version None)
Quarter: 2007Q2

REPORT INFORMATION
  Report Type: 
  Country: None (occurrence: None)
  Receive Date: 20070406
  Receipt Date: 20070323
  Transmission Date: 20071010
  Serious: Yes (Other)
  Sender: FDA-Public Use
  Company Number: PHBS2007CH05182

PATIENT
  Sex: Female

DRUGS (8)
  1. ZOMETA [Suspect]
     Indication: BREAST CANCER FEMALE
     Dosage: 4MG/MONTH
     Route: 042
     Dates: start: 20030101, end: 20050601
  2. LOSARTAN POSTASSIUM [Concomitant]
  3. METFORMIN [Concomitant]
     Indication: DIABETES MELLITUS
  4. AVANDIA [Concomitant]
     Indication: DIABETES MELLITUS
  5. ELTROXIN ^GLAXO^ [Concomitant]
     Indication: HYPOTHYROIDISM
  6. XELODA [Concomitant]
     Indication: BREAST CANCER FEMALE
  7. BENADON ^ROCHE^ [Concomitant]
     Dosage: 300MG/DAY
  8. AREDIA [Suspect]
     Indication: BREAST CANCER FEMALE
     Dosage: 90MG/MONTH
     Route: 042
     Dates: start: 19981101, end: 20030101

REACTIONS (4)
  - BONE DISORDER [None]
  - BONE LESION [None]
  - OSTEONECROSIS [None]
  - TOOTH EXTRACTION [None]
